FAERS Safety Report 4895538-7 (Version None)
Quarter: 2006Q1

REPORT INFORMATION
  Report Type: 
  Country: None (occurrence: None)
  Receive Date: 20060125
  Receipt Date: 20040406
  Transmission Date: 20060701
  Serious: Yes (Death, Hospitalization)
  Sender: FDA-Public Use
  Company Number: FR_040303808

PATIENT
  Age: 37 Year
  Sex: Female

DRUGS (13)
  1. VANCOMYCIN [Suspect]
     Indication: LUNG DISORDER
     Dates: start: 20031217, end: 20031229
  2. VANCOMYCIN [Suspect]
     Indication: STREPTOCOCCAL INFECTION
     Dates: start: 20031217, end: 20031229
  3. HALDOL [Concomitant]
  4. NOZINAN (LEVOMEPROMAZINE) [Concomitant]
  5. RIFADIN [Concomitant]
  6. NEO-MERCAZOLE TAB [Concomitant]
  7. ACETAMINOPHEN [Concomitant]
  8. MORPHINE SULFATE [Concomitant]
  9. OMEPRAZOLE [Concomitant]
  10. AVLOCADRYL (PROPRANOLOL) [Concomitant]
  11. SPECIAFOLDINE (FOLIC ACID) [Concomitant]
  12. PAROXETINE HYDROCHLORIDE [Concomitant]
  13. LEXOMIL (BROMAZEPAM) [Concomitant]

REACTIONS (4)
  - JOINT EFFUSION [None]
  - PURULENCE [None]
  - PYREXIA [None]
  - SUDDEN DEATH [None]
